FAERS Safety Report 11438768 (Version 1)
Quarter: 2015Q3

REPORT INFORMATION
  Report Type: Spontaneous
  Country: CA (occurrence: CA)
  Receive Date: 20150901
  Receipt Date: 20150901
  Transmission Date: 20151125
  Serious: Yes (Hospitalization)
  Sender: FDA-Public Use
  Company Number: CA-UCBSA-2015027241

PATIENT
  Age: 55 Year
  Sex: Female
  Weight: 48 kg

DRUGS (1)
  1. VIMPAT [Suspect]
     Active Substance: LACOSAMIDE
     Indication: EPILEPSY
     Dosage: 100 MG, FOR 4 YRS
     Route: 048

REACTIONS (4)
  - Dizziness [Recovered/Resolved]
  - Fear [Recovered/Resolved]
  - Diplopia [Recovered/Resolved]
  - Paranoia [Recovered/Resolved]
